FAERS Safety Report 4348374-4 (Version None)
Quarter: 2004Q2

REPORT INFORMATION
  Report Type: 
  Country: None (occurrence: None)
  Receive Date: 20040427
  Receipt Date: 20040412
  Transmission Date: 20050107
  Serious: Yes (Hospitalization, Other)
  Sender: FDA-Public Use
  Company Number: PHEH2004US04164

PATIENT
  Age: 81 Year

DRUGS (14)
  1. ZELNORM [Suspect]
     Indication: IRRITABLE BOWEL SYNDROME
     Dosage: 6 MG, BID
     Route: 048
     Dates: start: 20040101, end: 20040405
  2. SYNTHROID [Concomitant]
     Dosage: .88 MG, QD
  3. AVAPRO [Concomitant]
  4. ALLEGRA-D [Concomitant]
     Dosage: 180 MG, QD
  5. NASACORT [Concomitant]
  6. COMBIVENT [Concomitant]
  7. ADVAIR DISKUS 100/50 [Concomitant]
  8. ELAVIL [Concomitant]
     Dosage: 25 MG, QHS
  9. PRILOSEC [Concomitant]
     Dosage: 2.5 MG, QHS
  10. ZANTAC [Concomitant]
     Dosage: 150 MG IN THE MORNING
  11. CELEBREX [Concomitant]
     Dosage: 100 MG, BID
  12. CALCIUM CITRATE [Concomitant]
     Dosage: 500 MG, TID
  13. VITAMIN D [Concomitant]
     Dosage: 800 UNITS DAILY
  14. MAXZIDE [Concomitant]
     Dosage: 12.5 MG, QD

REACTIONS (19)
  - ABDOMINAL PAIN [None]
  - ASTHENIA [None]
  - BLOOD PRESSURE DECREASED [None]
  - BLOOD SODIUM DECREASED [None]
  - BODY TEMPERATURE DECREASED [None]
  - CEREBRAL ATROPHY [None]
  - CONSTIPATION [None]
  - FALL [None]
  - FEELING ABNORMAL [None]
  - FLATULENCE [None]
  - GASTROINTESTINAL HAEMORRHAGE [None]
  - HAEMOGLOBIN DECREASED [None]
  - ILEUS [None]
  - LOSS OF CONSCIOUSNESS [None]
  - SYNCOPE [None]
  - SYNCOPE VASOVAGAL [None]
  - TEMPERATURE REGULATION DISORDER [None]
  - TREMOR [None]
  - VISION BLURRED [None]
